FAERS Safety Report 25858665 (Version 1)
Quarter: 2025Q3

REPORT INFORMATION
  Report Type: Spontaneous
  Country: US (occurrence: None)
  Receive Date: 20250927
  Receipt Date: 20250927
  Transmission Date: 20251021
  Serious: Yes (Other)
  Sender: FDA-CTU
  Company Number: None

PATIENT
  Age: 47 Year
  Sex: Female

DRUGS (1)
  1. STELARA [Suspect]
     Active Substance: USTEKINUMAB
     Indication: Colitis microscopic
     Dosage: FREQUENCY : MONTHLY;?
     Route: 058

REACTIONS (3)
  - Breast cancer [None]
  - Product dose omission in error [None]
  - Insurance issue [None]
